FAERS Safety Report 7344585-4 (Version None)
Quarter: 2011Q1

REPORT INFORMATION
  Report Type: 
  Country: None (occurrence: None)
  Receive Date: 20110310
  Receipt Date: 20110213
  Transmission Date: 20110831
  Serious: No
  Sender: FDA-Public Use
  Company Number: US-B.I. PHARMACEUTICALS,INC./RIDGEFIELD-2011-BP-02536BP

PATIENT
  Age: 69 Year
  Sex: Female

DRUGS (3)
  1. PROTONIX [Concomitant]
  2. PRADAXA [Suspect]
     Indication: ATRIAL FIBRILLATION
     Dosage: 300 MG
     Route: 048
     Dates: start: 20110121
  3. COUMADIN [Concomitant]
     Indication: ATRIAL FIBRILLATION
     Dates: end: 20110101

REACTIONS (5)
  - NAUSEA [None]
  - ERUCTATION [None]
  - DIARRHOEA [None]
  - FLATULENCE [None]
  - ABDOMINAL PAIN [None]
